FAERS Safety Report 9962464 (Version 1)
Quarter: 2014Q1

REPORT INFORMATION
  Report Type: Report from Study
  Country: US (occurrence: US)
  Receive Date: 20140305
  Receipt Date: 20140305
  Transmission Date: 20141002
  Serious: No
  Sender: FDA-Public Use
  Company Number: US-ABBVIE-13P-163-1116846-00

PATIENT
  Age: 79 Year
  Sex: Female
  Weight: 62.2 kg

DRUGS (6)
  1. HUMIRA [Suspect]
     Indication: RHEUMATOID ARTHRITIS
     Dates: start: 2011
  2. HUMIRA [Suspect]
     Dates: start: 2011, end: 2011
  3. UNKNOWN INJECTION [Concomitant]
     Indication: RHEUMATOID ARTHRITIS
  4. METHOTREXATE [Concomitant]
     Indication: RHEUMATOID ARTHRITIS
  5. MOBIC [Concomitant]
     Indication: RHEUMATOID ARTHRITIS
  6. VOLTAREN GEL [Concomitant]
     Indication: RHEUMATOID ARTHRITIS

REACTIONS (3)
  - Gait disturbance [Recovered/Resolved]
  - Rheumatoid arthritis [Recovered/Resolved]
  - Abdominal adhesions [Recovered/Resolved]
